FAERS Safety Report 5503744-3 (Version None)
Quarter: 2007Q4

REPORT INFORMATION
  Report Type: 
  Country: None (occurrence: None)
  Receive Date: 20071030
  Receipt Date: 20071030
  Transmission Date: 20080405
  Serious: Yes (Other)
  Sender: FDA-Public Use
  Company Number: None

PATIENT
  Sex: Female
  Weight: 74.8435 kg

DRUGS (2)
  1. FENTANYL PATCHES [Suspect]
     Indication: LUMBAR RADICULOPATHY
     Dosage: 100 MCG Q60HOURS S.C.
     Route: 058
     Dates: start: 20071019
  2. FENTANYL PATCHES [Suspect]
     Indication: PAIN
     Dosage: 100 MCG Q60HOURS S.C.
     Route: 058
     Dates: start: 20071019

REACTIONS (7)
  - APPLICATION SITE ERYTHEMA [None]
  - APPLICATION SITE INFLAMMATION [None]
  - APPLICATION SITE RASH [None]
  - APPLICATION SITE REACTION [None]
  - APPLICATION SITE WARMTH [None]
  - HYPERAESTHESIA [None]
  - PHARMACEUTICAL PRODUCT COMPLAINT [None]
